FAERS Safety Report 5895718-8 (Version None)
Quarter: 2008Q3

REPORT INFORMATION
  Report Type: 
  Country: None (occurrence: None)
  Receive Date: 20080924
  Receipt Date: 20080619
  Transmission Date: 20090109
  Serious: No
  Sender: FDA-Public Use
  Company Number: US-BAYER-200827020NA

PATIENT
  Age: 63 Year
  Sex: Female

DRUGS (1)
  1. CLIMARA [Suspect]
     Indication: HORMONE REPLACEMENT THERAPY
     Route: 062

REACTIONS (5)
  - BONE PAIN [None]
  - HORMONE LEVEL ABNORMAL [None]
  - HOT FLUSH [None]
  - MIDDLE INSOMNIA [None]
  - VULVOVAGINAL DRYNESS [None]
